FAERS Safety Report 13577429 (Version 1)
Quarter: 2017Q2

REPORT INFORMATION
  Report Type: Spontaneous
  Country: GB (occurrence: GB)
  Receive Date: 20170524
  Receipt Date: 20170524
  Transmission Date: 20170830
  Serious: Yes (Hospitalization)
  Sender: FDA-Public Use
  Company Number: GB-TEVA-768987ACC

PATIENT
  Age: 75 Year
  Sex: Male

DRUGS (2)
  1. TOLTERODINE [Suspect]
     Active Substance: TOLTERODINE
     Route: 048
  2. GLICLAZIDE [Suspect]
     Active Substance: GLICLAZIDE
     Route: 048

REACTIONS (1)
  - Fall [Unknown]
